FAERS Safety Report 24169542 (Version 1)
Quarter: 2024Q3

REPORT INFORMATION
  Report Type: Spontaneous
  Country: US (occurrence: US)
  Receive Date: 20240802
  Receipt Date: 20240802
  Transmission Date: 20241017
  Serious: No
  Sender: LABORATOIRES SERB
  Company Number: US-SERB S.A.S.-2159924

PATIENT
  Age: 36 Year
  Sex: Male

DRUGS (1)
  1. CROFAB [Suspect]
     Active Substance: AGKISTRODON PISCIVORUS IMMUNE FAB ANTIVENIN (OVINE)\CROTALIDAE POLYVALENT IMMUNE FAB (OVINE)\CROTALU
     Indication: Snake bite
     Route: 065
     Dates: start: 20221002, end: 20221002

REACTIONS (2)
  - Heart rate decreased [Unknown]
  - Pain [Unknown]

NARRATIVE: CASE EVENT DATE: 20221002
